FAERS Safety Report 23796616 (Version 1)
Quarter: 2024Q2

REPORT INFORMATION
  Report Type: Spontaneous
  Country: FR (occurrence: FR)
  Receive Date: 20240430
  Receipt Date: 20240430
  Transmission Date: 20240715
  Serious: Yes (Other)
  Sender: FDA-Public Use
  Company Number: None

PATIENT
  Age: 29 Year
  Sex: Female

DRUGS (2)
  1. CUBICIN [Suspect]
     Active Substance: DAPTOMYCIN
     Indication: Bacteraemia
     Dosage: 800 MILLIGRAM ONCE A DAY
     Route: 042
     Dates: start: 20240210, end: 20240219
  2. MEROPENEM [Suspect]
     Active Substance: MEROPENEM
     Indication: Bacteraemia
     Dosage: 2 GRAM 4 TIMES A DAY
     Route: 042
     Dates: start: 20240205, end: 20240226

REACTIONS (3)
  - Eosinophilia [Recovered/Resolved]
  - Neutropenia [Recovered/Resolved]
  - Pruritus [Recovered/Resolved]

NARRATIVE: CASE EVENT DATE: 20240215
